FAERS Safety Report 22950281 (Version 2)
Quarter: 2024Q1

REPORT INFORMATION
  Report Type: Spontaneous
  Country: AR (occurrence: AR)
  Receive Date: 20230915
  Receipt Date: 20240311
  Transmission Date: 20240410
  Serious: Yes (Other)
  Sender: FDA-Public Use
  Company Number: AR-GLAXOSMITHKLINE-AR2023AMR123167

PATIENT

DRUGS (2)
  1. BENLYSTA [Suspect]
     Active Substance: BELIMUMAB
     Indication: Systemic lupus erythematosus
     Dosage: UNK (120MG-400 MG)
     Route: 042
     Dates: start: 20220405
  2. BENLYSTA [Suspect]
     Active Substance: BELIMUMAB
     Dosage: 520 MG, Q4W (EVERY 28 DAYS)
     Route: 042
     Dates: start: 20220405

REACTIONS (2)
  - Systemic lupus erythematosus [Not Recovered/Not Resolved]
  - Varicella [Recovered/Resolved]

NARRATIVE: CASE EVENT DATE: 20240201
